FAERS Safety Report 6610800-5 (Version None)
Quarter: 2010Q1

REPORT INFORMATION
  Report Type: 
  Country: None (occurrence: None)
  Receive Date: 20100302
  Receipt Date: 20100225
  Transmission Date: 20100710
  Serious: Yes (Death, Hospitalization)
  Sender: FDA-Public Use
  Company Number: AU-GENENTECH-295819

PATIENT
  Sex: Male

DRUGS (18)
  1. RITUXIMAB [Suspect]
     Indication: NON-HODGKIN'S LYMPHOMA
     Dosage: 750 MG, UNK
     Route: 065
     Dates: start: 20040830
  2. ETOPOSIDE [Suspect]
     Indication: NON-HODGKIN'S LYMPHOMA
     Dosage: 200 MG, UNK
     Route: 065
     Dates: start: 20040830, end: 20040901
  3. ETOPOSIDE [Suspect]
     Dosage: 200 MG, UNK
     Route: 065
     Dates: start: 20040916, end: 20040918
  4. ETOPOSIDE [Suspect]
     Dosage: 200 MG, UNK
     Route: 065
     Dates: start: 20041014, end: 20041016
  5. CARBOPLATIN [Suspect]
     Indication: NON-HODGKIN'S LYMPHOMA
     Dosage: 695 MG, UNK
     Route: 065
     Dates: start: 20040831, end: 20040831
  6. CARBOPLATIN [Suspect]
     Dosage: 695 MG, UNK
     Route: 065
     Dates: start: 20040917, end: 20040917
  7. CARBOPLATIN [Suspect]
     Dosage: 800 MG, UNK
     Route: 065
     Dates: start: 20041015, end: 20041015
  8. IFOSFAMIDE [Suspect]
     Indication: NON-HODGKIN'S LYMPHOMA
     Dosage: 10000 MG, UNK
     Route: 065
     Dates: start: 20040831, end: 20040831
  9. IFOSFAMIDE [Suspect]
     Dosage: 10000 MG, UNK
     Route: 065
     Dates: start: 20040917, end: 20040917
  10. IFOSFAMIDE [Suspect]
     Dosage: 10000 MG, UNK
     Route: 065
     Dates: start: 20041015, end: 20041015
  11. NEUPOGEN [Suspect]
     Indication: NON-HODGKIN'S LYMPHOMA
     Dosage: UNK
     Route: 065
     Dates: start: 20040904, end: 20040904
  12. NEUPOGEN [Suspect]
     Dosage: UNK
     Route: 065
     Dates: start: 20040921, end: 20040921
  13. NEUPOGEN [Suspect]
     Dosage: UNK
     Route: 065
     Dates: start: 20041019, end: 20041027
  14. CARMUSTINE [Concomitant]
     Indication: DRUG USE FOR UNKNOWN INDICATION
     Dosage: UNK
     Dates: start: 20041117
  15. CYTARABINE [Concomitant]
     Indication: DRUG USE FOR UNKNOWN INDICATION
     Dosage: 3200 MG, UNK
     Dates: start: 20041117
  16. MELPHALAN [Concomitant]
     Indication: DRUG USE FOR UNKNOWN INDICATION
     Dosage: 280 MG, UNK
     Dates: start: 20041117
  17. RED BLOOD CELLS [Concomitant]
     Indication: DRUG USE FOR UNKNOWN INDICATION
  18. PLATELETS [Concomitant]
     Indication: DRUG USE FOR UNKNOWN INDICATION

REACTIONS (1)
  - TRANSITIONAL CELL CARCINOMA [None]
